FAERS Safety Report 9461323 (Version 1)
Quarter: 2013Q3

REPORT INFORMATION
  Report Type: Spontaneous
  Country: US (occurrence: US)
  Receive Date: 20130816
  Receipt Date: 20130816
  Transmission Date: 20140515
  Serious: No
  Sender: FDA-Public Use
  Company Number: US-PFIZER INC-2013237419

PATIENT
  Sex: Female

DRUGS (2)
  1. CELEBREX [Suspect]
     Dosage: UNK, 2X/DAY
     Dates: start: 201308, end: 20130813
  2. ASPIRIN [Suspect]
     Dosage: 81 MG, UNK

REACTIONS (2)
  - Drug ineffective [Unknown]
  - Pain in extremity [Unknown]
